FAERS Safety Report 20735463 (Version 3)
Quarter: 2022Q2

REPORT INFORMATION
  Report Type: Spontaneous
  Country: US (occurrence: None)
  Receive Date: 20220421
  Receipt Date: 20220519
  Transmission Date: 20220721
  Serious: No
  Sender: FDA-Public Use
  Company Number: 2022A147277

PATIENT
  Age: 40 Year
  Sex: Female
  Weight: 65.8 kg

DRUGS (6)
  1. PULMICORT FLEXHALER [Suspect]
     Active Substance: BUDESONIDE
     Indication: Asthma exercise induced
     Dosage: 2 PUFFS BID
     Route: 055
     Dates: start: 20210817
  2. PULMICORT FLEXHALER [Suspect]
     Active Substance: BUDESONIDE
     Indication: Asthma exercise induced
     Dosage: 1 PUFF BID
     Route: 055
  3. PULMICORT FLEXHALER [Suspect]
     Active Substance: BUDESONIDE
     Indication: Asthma exercise induced
     Dosage: 1 PUFF DAILY
     Route: 055
     Dates: start: 20220314
  4. PULMICORT FLEXHALER [Suspect]
     Active Substance: BUDESONIDE
     Indication: Asthma exercise induced
     Dosage: 2 PUFFS BID
     Route: 055
     Dates: start: 202205
  5. ADALIMUMAB [Concomitant]
     Active Substance: ADALIMUMAB
     Indication: Rheumatoid arthritis
     Dosage: ONCE WEEKLY
  6. NORETHINDRONE [Concomitant]
     Active Substance: NORETHINDRONE
     Route: 048

REACTIONS (6)
  - Asthma [Unknown]
  - Device use issue [Unknown]
  - Product dose omission issue [Unknown]
  - Off label use [Unknown]
  - Device issue [Unknown]
  - Device malfunction [Unknown]
